FAERS Safety Report 4800949-1 (Version None)
Quarter: 2005Q4

REPORT INFORMATION
  Report Type: 
  Country: None (occurrence: None)
  Receive Date: 20051017
  Receipt Date: 20050609
  Transmission Date: 20060501
  Serious: Yes (Hospitalization)
  Sender: FDA-Public Use
  Company Number: US-MERCK-0506USA01474

PATIENT
  Age: 58 Year
  Sex: Male
  Weight: 92 kg

DRUGS (12)
  1. VIOXX [Suspect]
     Route: 048
     Dates: start: 20030201, end: 20030605
  2. ASPIRIN [Concomitant]
     Route: 065
  3. ALLOPURINOL [Concomitant]
     Route: 065
  4. LIPITOR [Concomitant]
     Route: 065
  5. GLYBURIDE [Concomitant]
     Route: 065
  6. DYAZIDE [Concomitant]
     Route: 065
  7. PRINIVIL [Concomitant]
     Route: 065
  8. PRINIVIL [Concomitant]
     Route: 065
  9. TIAZAC [Concomitant]
     Route: 065
  10. NITROPASTE [Concomitant]
     Route: 061
  11. TOPROL-XL [Concomitant]
     Route: 065
  12. ACTOS [Concomitant]
     Route: 065

REACTIONS (7)
  - BLOOD GLUCOSE INCREASED [None]
  - BRADYCARDIA [None]
  - CEREBROVASCULAR ACCIDENT [None]
  - HAEMORRHAGIC STROKE [None]
  - HYPERTENSION [None]
  - NERVOUS SYSTEM DISORDER [None]
  - VENTRICULAR HYPERTROPHY [None]
